FAERS Safety Report 8987986 (Version 1)
Quarter: 2012Q4

REPORT INFORMATION
  Report Type: Report from Study
  Country: CA (occurrence: CA)
  Receive Date: 20121227
  Receipt Date: 20121227
  Transmission Date: 20130627
  Serious: Yes (Other)
  Sender: FDA-Public Use
  Company Number: CA-ROCHE-1173394

PATIENT
  Sex: Female
  Weight: 80 kg

DRUGS (7)
  1. TOCILIZUMAB [Suspect]
     Indication: RHEUMATOID ARTHRITIS
     Route: 042
     Dates: start: 20101222
  2. TOCILIZUMAB [Suspect]
     Route: 042
     Dates: start: 20120117
  3. TOCILIZUMAB [Suspect]
     Route: 042
     Dates: start: 20120801, end: 20121120
  4. COUMADIN [Concomitant]
  5. METHOTREXATE [Concomitant]
  6. PREDNISONE [Concomitant]
  7. EMTEC-30 [Concomitant]

REACTIONS (1)
  - Rheumatoid arthritis [Unknown]
